FAERS Safety Report 7337720-5 (Version None)
Quarter: 2011Q1

REPORT INFORMATION
  Report Type: 
  Country: None (occurrence: None)
  Receive Date: 20110303
  Receipt Date: 20110303
  Transmission Date: 20110831
  Serious: No
  Sender: FDA-Public Use
  Company Number: None

PATIENT
  Sex: Female
  Weight: 143.2 kg

DRUGS (1)
  1. IMIQUIMOD [Suspect]
     Indication: ACTINIC KERATOSIS
     Dosage: DAB AT BEDTIME ONCE FOR 2 WEEKS
     Dates: start: 20110222, end: 20110228

REACTIONS (10)
  - HEADACHE [None]
  - DIZZINESS [None]
  - APPLICATION SITE SWELLING [None]
  - GLOSSODYNIA [None]
  - ABDOMINAL PAIN UPPER [None]
  - TOOTHACHE [None]
  - APPLICATION SITE PAIN [None]
  - COLD SWEAT [None]
  - GINGIVAL PAIN [None]
  - ORAL PAIN [None]
